FAERS Safety Report 4708915-1 (Version None)
Quarter: 2005Q3

REPORT INFORMATION
  Report Type: 
  Country: None (occurrence: None)
  Receive Date: 20050707
  Receipt Date: 20040202
  Transmission Date: 20060218
  Serious: Yes (Hospitalization)
  Sender: FDA-Public Use
  Company Number: GB-MERCK-0402GBR00038

PATIENT
  Age: 69 Year
  Sex: Female

DRUGS (12)
  1. ZETIA [Suspect]
     Indication: HYPERCHOLESTEROLAEMIA
     Route: 048
     Dates: start: 20031114
  2. PRAVASTATIN SODIUM [Suspect]
     Indication: HYPERCHOLESTEROLAEMIA
     Route: 048
     Dates: start: 20031114, end: 20031214
  3. BUMETANIDE [Concomitant]
     Indication: HYPERTENSION
     Route: 048
  4. BUMETANIDE [Concomitant]
     Indication: CARDIAC FAILURE
     Route: 048
  5. CARVEDILOL [Concomitant]
     Indication: CARDIAC FAILURE
     Route: 048
  6. CARVEDILOL [Concomitant]
     Indication: HYPERTENSION
     Route: 048
  7. CLOPIDOGREL BISULFATE [Concomitant]
     Indication: ATRIAL FIBRILLATION
     Route: 048
  8. CANDESARTAN [Concomitant]
     Indication: HYPERTENSION
     Route: 048
  9. CALCIUM CARBONATE [Concomitant]
     Indication: BONE DISORDER
     Route: 048
  10. ACETAMINOPHEN [Concomitant]
     Indication: PAIN
     Route: 048
  11. WARFARIN [Concomitant]
     Indication: ATRIAL FIBRILLATION
     Route: 048
  12. ROSUVASTATIN CALCIUM [Concomitant]
     Route: 048
     Dates: end: 20031107

REACTIONS (4)
  - CONTUSION [None]
  - INTERNATIONAL NORMALISED RATIO INCREASED [None]
  - MYALGIA [None]
  - MYOSITIS [None]
